FAERS Safety Report 5901031-2 (Version None)
Quarter: 2008Q3

REPORT INFORMATION
  Report Type: 
  Country: None (occurrence: None)
  Receive Date: 20080924
  Receipt Date: 20080908
  Transmission Date: 20090109
  Serious: Yes (Hospitalization)
  Sender: FDA-Public Use
  Company Number: DSA_32433_2008

PATIENT
  Age: 94 Year
  Sex: Female

DRUGS (10)
  1. ENALAPRIL MALEATE [Suspect]
     Indication: DRUG USE FOR UNKNOWN INDICATION
     Dosage: (20 MG QD ORAL)
     Route: 048
     Dates: end: 20080727
  2. AMILORIDE HCL [Suspect]
     Indication: DRUG USE FOR UNKNOWN INDICATION
     Dosage: (1 DF QD ORAL)
     Route: 048
     Dates: end: 20080727
  3. FORLAX [Concomitant]
  4. NITROGLYCERIN [Concomitant]
  5. RABEPRAZOLE SODIUM [Concomitant]
  6. TEMESTA [Concomitant]
  7. THERALENE [Concomitant]
  8. VASTAREL [Concomitant]
  9. ZANIDIP [Concomitant]
  10. ACEBUTOLOL HYDROCHLORIDE [Concomitant]

REACTIONS (6)
  - BRADYPHRENIA [None]
  - CONFUSIONAL STATE [None]
  - FALL [None]
  - HYPONATRAEMIA [None]
  - PSYCHOMOTOR SKILLS IMPAIRED [None]
  - URINARY INCONTINENCE [None]
